FAERS Safety Report 9449041 (Version 1)
Quarter: 2013Q3

REPORT INFORMATION
  Report Type: Spontaneous
  Country: CH (occurrence: CH)
  Receive Date: 20130808
  Receipt Date: 20130808
  Transmission Date: 20140515
  Serious: Yes (Hospitalization, Other)
  Sender: FDA-Public Use
  Company Number: CH-ABBOTT-13P-151-1128515-00

PATIENT
  Age: 46 Year
  Sex: Male
  Weight: 83 kg

DRUGS (6)
  1. NORVIR [Suspect]
     Indication: PRODUCT USED FOR UNKNOWN INDICATION
     Route: 048
     Dates: start: 200903, end: 201205
  2. NORVIR [Suspect]
     Route: 048
     Dates: start: 201305, end: 20130515
  3. TRUVADA [Suspect]
     Indication: PRODUCT USED FOR UNKNOWN INDICATION
     Route: 048
     Dates: start: 200903, end: 201205
  4. TRUVADA [Suspect]
     Route: 048
     Dates: start: 201305, end: 20130515
  5. REYATAZ [Suspect]
     Indication: PRODUCT USED FOR UNKNOWN INDICATION
     Route: 048
     Dates: start: 200903, end: 201205
  6. REYATAZ [Suspect]
     Route: 048
     Dates: start: 201305, end: 20130523

REACTIONS (6)
  - Blood creatine phosphokinase increased [Recovering/Resolving]
  - Myoglobin blood increased [Recovering/Resolving]
  - Hepatic enzyme increased [Recovering/Resolving]
  - Renal impairment [Unknown]
  - Syncope [Unknown]
  - Epilepsy [Unknown]
